FAERS Safety Report 12433097 (Version 2)
Quarter: 2016Q2

REPORT INFORMATION
  Report Type: Report from Study
  Country: FR (occurrence: FR)
  Receive Date: 20160603
  Receipt Date: 20160614
  Transmission Date: 20160815
  Serious: Yes (Hospitalization)
  Sender: FDA-Public Use
  Company Number: FR-JNJFOC-20160313831

PATIENT
  Age: 55 Year
  Sex: Male

DRUGS (8)
  1. TIOTROPIUM [Concomitant]
     Active Substance: TIOTROPIUM
     Indication: CHRONIC OBSTRUCTIVE PULMONARY DISEASE
     Route: 048
  2. RALTEGRAVIR. [Suspect]
     Active Substance: RALTEGRAVIR
     Indication: INFECTION
     Dosage: 400 (UNITS UNSPECIFIED)
     Route: 065
     Dates: start: 20150625
  3. AMLODIPINE [Concomitant]
     Active Substance: AMLODIPINE BESYLATE
     Indication: HYPERTENSION
     Dosage: 10 (UNIT UNSPECIFIED)
     Route: 048
  4. ATENOLOL. [Concomitant]
     Active Substance: ATENOLOL
     Indication: HYPERTENSION
     Dosage: 50 (UNIT UNSPECIFIED)
     Route: 048
  5. RAMPRIL [Concomitant]
     Indication: HYPERTENSION
     Dosage: 2500 (UNIT UNSPECIFIED)
     Route: 048
  6. TMC125 [Suspect]
     Active Substance: ETRAVIRINE
     Indication: INFECTION
     Dosage: 200 (UNITS UNSPECIFIED)
     Route: 048
     Dates: start: 20150625
  7. BUDESONIDE W/FORMOTEROL FUMARATE [Concomitant]
     Active Substance: BUDESONIDE\FORMOTEROL FUMARATE
     Indication: ASTHMA
     Dosage: 400 (UNIT UNSPECIFIED)
     Route: 048
  8. SERTRALINE [Concomitant]
     Active Substance: SERTRALINE HYDROCHLORIDE
     Indication: DEPRESSION
     Dosage: 50 (UNIT UNSPECIFIED)
     Route: 048

REACTIONS (1)
  - Papillary cystadenoma lymphomatosum [Unknown]

NARRATIVE: CASE EVENT DATE: 20160119
